FAERS Safety Report 9216146 (Version 1)
Quarter: 2013Q2

REPORT INFORMATION
  Report Type: Spontaneous
  Country: PT (occurrence: None)
  Receive Date: 20130402
  Receipt Date: 20130402
  Transmission Date: 20140414
  Serious: Yes (Other)
  Sender: FDA-Public Use
  Company Number: 2013P1003672

PATIENT
  Age: 39 Year
  Sex: Male
  Weight: 76 kg

DRUGS (1)
  1. AMIODARONE [Suspect]
     Indication: TACHYCARDIA
     Route: 042
     Dates: start: 20130207, end: 20130207

REACTIONS (9)
  - Feeling hot [None]
  - Malaise [None]
  - Pallor [None]
  - Sedation [None]
  - Nausea [None]
  - Vomiting [None]
  - Hypotension [None]
  - Arrhythmia [None]
  - Condition aggravated [None]
